FAERS Safety Report 23825854 (Version 2)
Quarter: 2024Q3

REPORT INFORMATION
  Report Type: Spontaneous
  Country: US (occurrence: US)
  Receive Date: 20240507
  Receipt Date: 20240701
  Transmission Date: 20241017
  Serious: Yes (Other)
  Sender: PFIZER
  Company Number: US-PFIZER INC-PV202400058113

PATIENT
  Age: 78 Year
  Sex: Female
  Weight: 87.1 kg

DRUGS (21)
  1. BEVACIZUMAB [Suspect]
     Active Substance: BEVACIZUMAB
     Indication: Ovarian cancer
     Dosage: ONCE
     Route: 042
     Dates: start: 20220912
  2. BEVACIZUMAB [Suspect]
     Active Substance: BEVACIZUMAB
     Dosage: 15 MG/KG
     Dates: start: 20221003
  3. BEVACIZUMAB [Suspect]
     Active Substance: BEVACIZUMAB
     Dosage: 15 MG/KG
     Dates: start: 20221128
  4. BEVACIZUMAB [Suspect]
     Active Substance: BEVACIZUMAB
     Dosage: 15 MG/KG
     Dates: start: 20230130
  5. BEVACIZUMAB [Suspect]
     Active Substance: BEVACIZUMAB
     Dosage: CYCLE #9
     Dates: start: 20230717
  6. BEVACIZUMAB [Suspect]
     Active Substance: BEVACIZUMAB
     Dosage: CYCLE #13
     Dates: start: 20231009
  7. BEVACIZUMAB [Suspect]
     Active Substance: BEVACIZUMAB
     Dosage: 10 MG/KG
  8. BEVACIZUMAB [Suspect]
     Active Substance: BEVACIZUMAB
     Dosage: 10 MG/KG
     Dates: start: 20231120
  9. BEVACIZUMAB [Suspect]
     Active Substance: BEVACIZUMAB
     Dosage: 15 MG/KG, EVERY 3 WEEKS
  10. CARBOPLATIN [Suspect]
     Active Substance: CARBOPLATIN
     Dosage: AUC 5
     Dates: start: 20220912
  11. CARBOPLATIN [Suspect]
     Active Substance: CARBOPLATIN
     Dosage: AUC 5
     Dates: start: 20221003
  12. CARBOPLATIN [Suspect]
     Active Substance: CARBOPLATIN
     Dosage: AUC 4
     Dates: start: 20221031
  13. CARBOPLATIN [Suspect]
     Active Substance: CARBOPLATIN
     Dosage: AUC 4
     Dates: start: 20221212
  14. PACLITAXEL [Suspect]
     Active Substance: PACLITAXEL
     Dosage: 64 MG/M2
     Dates: start: 20220912
  15. PACLITAXEL [Suspect]
     Active Substance: PACLITAXEL
     Dosage: 64 MG/M2
     Dates: start: 20220919
  16. PACLITAXEL [Suspect]
     Active Substance: PACLITAXEL
     Dosage: 40 MG/M2
     Dates: start: 20221003
  17. PACLITAXEL [Suspect]
     Active Substance: PACLITAXEL
     Dosage: 40 MG/M2
  18. PACLITAXEL [Suspect]
     Active Substance: PACLITAXEL
     Dosage: UNK
     Dates: start: 20221017
  19. PACLITAXEL [Suspect]
     Active Substance: PACLITAXEL
     Dosage: 40 MG/M2
     Dates: start: 20221031
  20. PACLITAXEL [Suspect]
     Active Substance: PACLITAXEL
     Dosage: 40 MG/M2
     Dates: start: 20221128
  21. PACLITAXEL [Suspect]
     Active Substance: PACLITAXEL
     Dosage: 40 MG/M2
     Dates: start: 20221212

REACTIONS (1)
  - Neutropenia [Unknown]
